FAERS Safety Report 7879228-4 (Version None)
Quarter: 2011Q4

REPORT INFORMATION
  Report Type: 
  Country: None (occurrence: None)
  Receive Date: 20111101
  Receipt Date: 20111030
  Transmission Date: 20120403
  Serious: Yes (Other)
  Sender: FDA-Public Use
  Company Number: US-PFIZER INC-2011264853

PATIENT
  Sex: Female
  Weight: 56.689 kg

DRUGS (1)
  1. IBUPROFEN (ADVIL) [Suspect]
     Indication: PYREXIA
     Dosage: 200 MG, UNK
     Route: 048
     Dates: start: 20111029, end: 20111029

REACTIONS (2)
  - EPISTAXIS [None]
  - HAEMATEMESIS [None]
